FAERS Safety Report 14899156 (Version 2)
Quarter: 2018Q4

REPORT INFORMATION
  Report Type: Report from Study
  Country: US (occurrence: US)
  Receive Date: 20180516
  Receipt Date: 20181102
  Transmission Date: 20190204
  Serious: Yes (Death, Hospitalization)
  Sender: FDA-Public Use
  Company Number: US-EXELIXIS-CABO-18013031

PATIENT
  Age: 61 Year
  Sex: Male

DRUGS (13)
  1. MORPHINE [Concomitant]
     Active Substance: MORPHINE
  2. SITAGLIPTIN [Concomitant]
     Active Substance: SITAGLIPTIN
  3. VITAMIN B12 [Concomitant]
     Active Substance: CYANOCOBALAMIN
  4. CABOMETYX [Suspect]
     Active Substance: CABOZANTINIB S-MALATE
     Indication: LUNG DISORDER
  5. GABAPENTIN. [Concomitant]
     Active Substance: GABAPENTIN
  6. TAMSULOSIN [Concomitant]
     Active Substance: TAMSULOSIN
  7. FOLIC ACID. [Concomitant]
     Active Substance: FOLIC ACID
  8. CABOMETYX [Suspect]
     Active Substance: CABOZANTINIB S-MALATE
     Indication: RENAL CANCER METASTATIC
     Dosage: 60 MG, QD
     Route: 048
     Dates: start: 20180216, end: 20180323
  9. HYDROMORPHONE [Concomitant]
     Active Substance: HYDROMORPHONE
  10. METOPROLOL. [Concomitant]
     Active Substance: METOPROLOL
  11. ASA [Concomitant]
     Active Substance: ASPIRIN
  12. MELATONIN [Concomitant]
     Active Substance: MELATONIN
  13. VITAMIN D3 [Concomitant]
     Active Substance: CHOLECALCIFEROL

REACTIONS (4)
  - Malignant neoplasm progression [Fatal]
  - Dehydration [Recovered/Resolved]
  - Sepsis [Unknown]
  - Metastases to bone [Unknown]

NARRATIVE: CASE EVENT DATE: 2018
